FAERS Safety Report 24604352 (Version 5)
Quarter: 2024Q4

REPORT INFORMATION
  Report Type: Spontaneous
  Country: US (occurrence: US)
  Receive Date: 20241111
  Receipt Date: 20241203
  Transmission Date: 20250115
  Serious: No
  Sender: PFIZER
  Company Number: US-PFIZER INC-PV202400113332

PATIENT
  Age: 63 Year
  Sex: Female

DRUGS (6)
  1. TUKYSA [Suspect]
     Active Substance: TUCATINIB
     Indication: Human epidermal growth factor receptor positive
     Dosage: 150MG 2 TABLETS TWICE A DAY/ TAKE TWO 150 TABLETS BY MOUTH TWICE DAILY
     Route: 048
  2. TUKYSA [Suspect]
     Active Substance: TUCATINIB
     Dosage: 2 TABLETS PO (PER ORAL) BID (TWICE A DAY)
     Route: 048
  3. NORCO [Suspect]
     Active Substance: ACETAMINOPHEN\HYDROCODONE BITARTRATE
     Indication: Back pain
     Dosage: UNK
  4. NORCO [Suspect]
     Active Substance: ACETAMINOPHEN\HYDROCODONE BITARTRATE
     Indication: Diarrhoea
  5. LUNESTA [Suspect]
     Active Substance: ESZOPICLONE
     Dosage: CERTAIN WEEKS OF HER CHEMO CYCLE
  6. XELODA [Concomitant]
     Active Substance: CAPECITABINE
     Indication: Human epidermal growth factor receptor positive
     Dosage: UNK

REACTIONS (4)
  - Urinary tract infection [Unknown]
  - Pain [Unknown]
  - Brain fog [Unknown]
  - Off label use [Unknown]
